FAERS Safety Report 8908592 (Version 1)
Quarter: 2012Q4

REPORT INFORMATION
  Report Type: 
  Country: US (occurrence: US)
  Receive Date: 20121114
  Receipt Date: 20121114
  Transmission Date: 20130627
  Serious: No
  Sender: FDA-Public Use
  Company Number: US-PFIZER INC-2012281227

PATIENT
  Age: 75 Year
  Sex: Female
  Weight: 58.96 kg

DRUGS (2)
  1. VANCOMYCIN [Suspect]
     Dosage: UNK
  2. OXACILLIN [Suspect]
     Dosage: UNK

REACTIONS (1)
  - Drug resistance [Recovered/Resolved]
